FAERS Safety Report 8410733-8 (Version None)
Quarter: 2012Q2

REPORT INFORMATION
  Report Type: 
  Country: None (occurrence: None)
  Receive Date: 20120529
  Receipt Date: 20051215
  Transmission Date: 20120825
  Serious: Yes (Hospitalization)
  Sender: FDA-Public Use
  Company Number: 15691-USA-05-3176

PATIENT
  Age: 77 Year
  Sex: Male

DRUGS (11)
  1. LASIX [Concomitant]
  2. ADVAIR HFA [Concomitant]
  3. ALLOPURINOL [Concomitant]
  4. CARDIA XT (DILTIAZEM) [Concomitant]
  5. K-DUR (POTASSIUM) [Concomitant]
  6. GLYBURIDE [Concomitant]
  7. TOLVAPTAN (TOLVAPTAN(V4.1)) 30MG [Suspect]
     Indication: CARDIAC FAILURE CONGESTIVE
     Dosage: 30 MG, QD, ORAL
     Route: 048
     Dates: start: 20041005, end: 20051021
  8. AVANDIA [Concomitant]
  9. DIOVAN [Concomitant]
  10. SPIRIVA [Concomitant]
  11. OXYGEN (OXYGEN) [Concomitant]

REACTIONS (18)
  - RENAL FAILURE ACUTE [None]
  - BODY TEMPERATURE DECREASED [None]
  - HAEMOGLOBIN DECREASED [None]
  - BLOOD PRESSURE DECREASED [None]
  - BREATH SOUNDS ABNORMAL [None]
  - BLOOD GLUCOSE INCREASED [None]
  - MITRAL VALVE STENOSIS [None]
  - HAEMATOCRIT DECREASED [None]
  - VENTRICULAR EXTRASYSTOLES [None]
  - OXYGEN SATURATION DECREASED [None]
  - DEHYDRATION [None]
  - ELECTROCARDIOGRAM ST-T SEGMENT ABNORMAL [None]
  - WEIGHT DECREASED [None]
  - BLOOD POTASSIUM DECREASED [None]
  - ARRHYTHMIA SUPRAVENTRICULAR [None]
  - HEART VALVE INCOMPETENCE [None]
  - AORTIC STENOSIS [None]
  - RESPIRATORY RATE INCREASED [None]
